FAERS Safety Report 10554098 (Version 1)
Quarter: 2014Q4

REPORT INFORMATION
  Report Type: Spontaneous
  Country: DE (occurrence: DE)
  Receive Date: 20141030
  Receipt Date: 20141030
  Transmission Date: 20150529
  Serious: Yes (Other)
  Sender: FDA-Public Use
  Company Number: DE-VERTEX PHARMACEUTICALS-2014-004416

PATIENT
  Age: 49 Year
  Sex: Male

DRUGS (7)
  1. INCIVO [Suspect]
     Active Substance: TELAPREVIR
     Indication: ANTIVIRAL TREATMENT
     Dosage: 750 MG, TID
     Route: 065
  2. PEGINTERFERON ALFA-2A [Suspect]
     Active Substance: PEGINTERFERON ALFA-2A
     Indication: ANTIVIRAL TREATMENT
     Dosage: 90 ?G, QW
     Route: 065
  3. RIBAVIRIN. [Suspect]
     Active Substance: RIBAVIRIN
     Dosage: 1000 MG, QD
     Route: 065
  4. CICLOSPORIN [Concomitant]
     Active Substance: CYCLOSPORINE
     Dosage: 75 MG, UNK
     Route: 065
  5. PEGINTERFERON ALFA-2A [Suspect]
     Active Substance: PEGINTERFERON ALFA-2A
     Dosage: 180 ?G, QW
     Route: 065
  6. RIBAVIRIN. [Suspect]
     Active Substance: RIBAVIRIN
     Indication: ANTIVIRAL TREATMENT
     Dosage: 800 MG, QD
     Route: 065
  7. CICLOSPORIN [Concomitant]
     Active Substance: CYCLOSPORINE
     Indication: IMMUNOSUPPRESSANT DRUG THERAPY
     Dosage: 25 MG, UNK
     Route: 065

REACTIONS (7)
  - Unevaluable event [Unknown]
  - Off label use [Unknown]
  - Anaemia [Recovered/Resolved]
  - Hypertension [Unknown]
  - Leukopenia [Recovering/Resolving]
  - Viral load increased [Unknown]
  - Erythema nodosum [Recovered/Resolved]
